FAERS Safety Report 5306144-4 (Version None)
Quarter: 2007Q2

REPORT INFORMATION
  Report Type: 
  Country: None (occurrence: None)
  Receive Date: 20070420
  Receipt Date: 20070420
  Transmission Date: 20071010
  Serious: No
  Sender: FDA-Public Use
  Company Number: None

PATIENT
  Sex: Female
  Weight: 61.2356 kg

DRUGS (2)
  1. HI-TECH PHARMACAL UREALAC CREAM (50%UREA) [Suspect]
     Indication: DRY SKIN
     Dosage: TWICE DAILY TO BOTH FEET APPLY UREALAC CREAM TO AFFECTED AREA(S)
     Dates: start: 20061211, end: 20070205
  2. HI-TECH PHARMACAL UREALAC CREAM (50%UREA) [Suspect]
     Indication: SKIN EXFOLIATION
     Dosage: TWICE DAILY TO BOTH FEET APPLY UREALAC CREAM TO AFFECTED AREA(S)
     Dates: start: 20061211, end: 20070205

REACTIONS (4)
  - PHARMACEUTICAL PRODUCT COMPLAINT [None]
  - POOR QUALITY DRUG ADMINISTERED [None]
  - SKIN INFECTION [None]
  - SKIN INJURY [None]
